FAERS Safety Report 24370168 (Version 1)
Quarter: 2024Q3

REPORT INFORMATION
  Report Type: Spontaneous
  Country: US (occurrence: US)
  Receive Date: 20240927
  Receipt Date: 20240927
  Transmission Date: 20241016
  Serious: No
  Sender: ROCHE
  Company Number: US-ROCHE-3556923

PATIENT
  Sex: Female

DRUGS (1)
  1. LUCENTIS [Suspect]
     Active Substance: RANIBIZUMAB
     Indication: Diabetic retinopathy
     Dosage: UNKNOWN
     Route: 050

REACTIONS (9)
  - Pharyngeal disorder [Unknown]
  - Ear disorder [Unknown]
  - Cough [Unknown]
  - Oropharyngeal discomfort [Unknown]
  - Anaemia [Unknown]
  - Palpitations [Unknown]
  - Ear disorder [Unknown]
  - Hypoacusis [Unknown]
  - Nasal disorder [Unknown]
